FAERS Safety Report 9165152 (Version 1)
Quarter: 2013Q1

REPORT INFORMATION
  Report Type: Spontaneous
  Country: US (occurrence: None)
  Receive Date: 20130313
  Receipt Date: 20130313
  Transmission Date: 20140127
  Serious: Yes (Other)
  Sender: FDA-Public Use
  Company Number: None

PATIENT
  Age: 70 Year
  Sex: Male
  Weight: 79.38 kg

DRUGS (1)
  1. QUETIAPINE [Suspect]
     Indication: PANIC ATTACK
     Dosage: 1 TAB. BED TIME, WHEN ORAL
     Route: 048
     Dates: start: 20050215, end: 20050630

REACTIONS (1)
  - Weight increased [None]
